FAERS Safety Report 5803682-2 (Version None)
Quarter: 2008Q3

REPORT INFORMATION
  Report Type: 
  Country: None (occurrence: None)
  Receive Date: 20080708
  Receipt Date: 20070817
  Transmission Date: 20090109
  Serious: No
  Sender: FDA-Public Use
  Company Number: US-AMGEN-KDL239437

PATIENT
  Sex: Female

DRUGS (1)
  1. KINERET [Suspect]
     Indication: JUVENILE ARTHRITIS
     Route: 058
     Dates: start: 20070713

REACTIONS (4)
  - FUNGAL INFECTION [None]
  - INJECTION SITE DISCOLOURATION [None]
  - PAIN [None]
  - VOMITING [None]
